FAERS Safety Report 4760549-9 (Version None)
Quarter: 2005Q3

REPORT INFORMATION
  Report Type: 
  Country: None (occurrence: None)
  Receive Date: 20050826
  Receipt Date: 20050120
  Transmission Date: 20060218
  Serious: Yes (Death, Other)
  Sender: FDA-Public Use
  Company Number: USA-2005-0018440

PATIENT
  Age: 18 Year
  Sex: Male
  Weight: 113.4 kg

DRUGS (7)
  1. OXYCONTIN [Suspect]
  2. BUPROPION HCL [Suspect]
  3. VENLAFAXINE HCL [Suspect]
  4. DIPHENHYDRAMINE HCL [Suspect]
  5. CAFFEINE (CAFFEINE) [Suspect]
  6. ADDERALL 10 [Concomitant]
  7. EFFEXOR [Concomitant]

REACTIONS (3)
  - DRUG ABUSER [None]
  - DRUG DEPENDENCE [None]
  - OVERDOSE [None]
